FAERS Safety Report 9882049 (Version 2)
Quarter: 2014Q1

REPORT INFORMATION
  Report Type: Report from Study
  Country: ES (occurrence: ES)
  Receive Date: 20140207
  Receipt Date: 20140217
  Transmission Date: 20141002
  Serious: Yes (Other)
  Sender: FDA-Public Use
  Company Number: ES-GLAXOSMITHKLINE-B0966328A

PATIENT
  Age: 28 Year
  Sex: Female
  Weight: 64 kg

DRUGS (16)
  1. BENLYSTA [Suspect]
     Indication: SYSTEMIC LUPUS ERYTHEMATOSUS
     Dosage: 10MGK TWICE PER DAY
     Route: 042
     Dates: start: 20130303
  2. ORAL STEROIDS [Concomitant]
     Indication: SYSTEMIC LUPUS ERYTHEMATOSUS
     Route: 048
     Dates: start: 20100406
  3. AZATHIOPRINE [Concomitant]
     Indication: SYSTEMIC LUPUS ERYTHEMATOSUS
     Route: 048
     Dates: start: 20120331
  4. MYCOPHENOLATE MOFETIL [Concomitant]
     Indication: SYSTEMIC LUPUS ERYTHEMATOSUS
  5. METHOTREXATE [Concomitant]
     Indication: SYSTEMIC LUPUS ERYTHEMATOSUS
     Dosage: 10MG WEEKLY
     Route: 048
     Dates: start: 20120331
  6. HYDROXYCHLOROQUINE [Concomitant]
     Indication: SYSTEMIC LUPUS ERYTHEMATOSUS
  7. NSAIDS [Concomitant]
     Indication: SYSTEMIC LUPUS ERYTHEMATOSUS
  8. ANTI-MALARIAL [Concomitant]
     Dosage: 200MG PER DAY
     Route: 048
     Dates: start: 20120331
  9. ANTIDEPRESSANTS [Concomitant]
  10. ANXIOLYTICS [Concomitant]
  11. GASTROINTESTINAL DRUG [Concomitant]
  12. SLEEPING MEDICATION [Concomitant]
  13. OMEPRAZOL [Concomitant]
     Indication: PROPHYLAXIS
     Dosage: 20MG PER DAY
     Route: 048
     Dates: start: 200708
  14. PREDNISONE [Concomitant]
     Indication: SLE ARTHRITIS
     Dosage: 5MG PER DAY
     Route: 048
     Dates: start: 200911
  15. MYFORTIC [Concomitant]
     Indication: SYSTEMIC LUPUS ERYTHEMATOSUS
     Dosage: 365MG FOUR TIMES PER DAY
     Route: 048
     Dates: start: 201202
  16. HYDROXYCHLOROQUINE [Concomitant]
     Indication: SYSTEMIC LUPUS ERYTHEMATOSUS
     Dosage: 200MG TWICE PER DAY
     Route: 048
     Dates: start: 200710

REACTIONS (1)
  - Cutaneous lupus erythematosus [Recovered/Resolved]
